FAERS Safety Report 5302208-X (Version None)
Quarter: 2007Q2

REPORT INFORMATION
  Report Type: 
  Country: None (occurrence: None)
  Receive Date: 20070419
  Receipt Date: 20070413
  Transmission Date: 20071010
  Serious: Yes (Life-Threatening, Hospitalization, Disabling, Other)
  Sender: FDA-Public Use
  Company Number: US-MERCK-0703USA02803

PATIENT
  Age: 36 Year
  Sex: Male
  Weight: 155 kg

DRUGS (14)
  1. JANUVIA [Suspect]
     Indication: DIABETES MELLITUS NON-INSULIN-DEPENDENT
     Route: 048
     Dates: start: 20070227, end: 20070306
  2. JANUVIA [Suspect]
     Route: 048
     Dates: start: 20070101
  3. ACTOS [Concomitant]
     Route: 065
  4. AVANDAMET [Concomitant]
     Indication: DIABETES MELLITUS NON-INSULIN-DEPENDENT
     Route: 065
     Dates: start: 20040827, end: 20070227
  5. AVANDAMET [Concomitant]
     Route: 065
     Dates: start: 20070227
  6. PRINIVIL [Concomitant]
     Indication: HYPERTENSION
     Route: 048
     Dates: start: 20040901, end: 20070306
  7. PRINIVIL [Concomitant]
     Route: 048
     Dates: start: 20070313
  8. TRICOR [Concomitant]
     Indication: BLOOD TRIGLYCERIDES INCREASED
     Route: 065
     Dates: start: 20040901, end: 20070306
  9. TRICOR [Concomitant]
     Route: 065
     Dates: start: 20070313
  10. ALLOPURINOL [Concomitant]
     Indication: GOUT
     Route: 065
     Dates: start: 20040901, end: 20070306
  11. ALLOPURINOL [Concomitant]
     Route: 065
     Dates: start: 20070313
  12. AVANDIA [Concomitant]
     Route: 065
  13. NORVASC [Concomitant]
     Route: 065
     Dates: start: 20070313
  14. PREVPAC [Concomitant]
     Indication: HELICOBACTER INFECTION
     Route: 065

REACTIONS (7)
  - GASTRITIS [None]
  - GASTROINTESTINAL HAEMORRHAGE [None]
  - HYPERKALAEMIA [None]
  - LIPOMA [None]
  - LIVER FUNCTION TEST ABNORMAL [None]
  - OESOPHAGITIS [None]
  - RENAL FAILURE ACUTE [None]
